FAERS Safety Report 5327934-8 (Version None)
Quarter: 2007Q2

REPORT INFORMATION
  Report Type: 
  Country: None (occurrence: None)
  Receive Date: 20070517
  Receipt Date: 20070508
  Transmission Date: 20071010
  Serious: Yes (Hospitalization, Other)
  Sender: FDA-Public Use
  Company Number: US-PFIZER INC-2007017512

PATIENT
  Sex: Male
  Weight: 68 kg

DRUGS (4)
  1. LYRICA [Suspect]
     Indication: PAIN
     Route: 048
  2. LYRICA [Suspect]
     Indication: GOUT
  3. LYRICA [Suspect]
     Indication: NEURALGIA
  4. PRAVACHOL [Concomitant]

REACTIONS (10)
  - ABASIA [None]
  - ARTHRALGIA [None]
  - DRY MOUTH [None]
  - DYSARTHRIA [None]
  - INFECTION [None]
  - MUSCULAR WEAKNESS [None]
  - SPINAL ANAESTHESIA [None]
  - STAPHYLOCOCCAL INFECTION [None]
  - SWELLING [None]
  - VISION BLURRED [None]
